FAERS Safety Report 21072565 (Version 1)
Quarter: 2022Q3

REPORT INFORMATION
  Report Type: Spontaneous
  Country: US (occurrence: None)
  Receive Date: 20220712
  Receipt Date: 20220712
  Transmission Date: 20221027
  Serious: Yes (Other)
  Sender: FDA-Public Use
  Company Number: None

PATIENT
  Age: 41 Year
  Weight: 81.19 kg

DRUGS (1)
  1. LEVOTHYROXINE [Suspect]
     Active Substance: LEVOTHYROXINE
     Indication: Autoimmune thyroiditis
     Dosage: FREQUENCY : DAILY;?
     Route: 048
     Dates: start: 20180328, end: 20180724

REACTIONS (2)
  - Fatigue [None]
  - Thyroid pain [None]

NARRATIVE: CASE EVENT DATE: 20180725
